FAERS Safety Report 16377483 (Version 1)
Quarter: 2019Q2

REPORT INFORMATION
  Report Type: Spontaneous
  Country: US (occurrence: US)
  Receive Date: 20190401
  Receipt Date: 20190401
  Transmission Date: 20190711
  Serious: Yes (Disabling, Other)
  Sender: FDA-Public Use
  Company Number: None

PATIENT
  Age: 73 Year
  Sex: Male
  Weight: 94.5 kg

DRUGS (3)
  1. LOSARTAN. [Concomitant]
     Active Substance: LOSARTAN
  2. MULTIVITAMIN [Concomitant]
     Active Substance: VITAMINS
  3. XANAX [Suspect]
     Active Substance: ALPRAZOLAM
     Indication: HEADACHE
     Dosage: ?          QUANTITY:1 TABLET(S);?
     Route: 048
     Dates: start: 19950801, end: 20170201

REACTIONS (2)
  - Drug withdrawal syndrome [None]
  - Product complaint [None]
